FAERS Safety Report 7592419-5 (Version None)
Quarter: 2011Q3

REPORT INFORMATION
  Report Type: 
  Country: None (occurrence: None)
  Receive Date: 20110706
  Receipt Date: 20110627
  Transmission Date: 20111222
  Serious: Yes (Life-Threatening)
  Sender: FDA-Public Use
  Company Number: TW-CELGENEUS-153-CCAZA-11060650

PATIENT
  Sex: Male
  Weight: 70.9 kg

DRUGS (11)
  1. AZACITIDINE [Suspect]
     Route: 050
     Dates: end: 20110609
  2. APREPITANT [Concomitant]
     Dosage: 125 MILLIGRAM
     Route: 048
     Dates: start: 20110512, end: 20110512
  3. AZACITIDINE [Suspect]
     Dosage: 75 MILLIGRAM/SQ. METER
     Route: 058
     Dates: start: 20110407, end: 20110413
  4. FUROSEMIDE [Concomitant]
     Dosage: 40 MILLIGRAM
     Route: 048
     Dates: start: 20110526, end: 20110601
  5. SIMVASTATIN [Concomitant]
     Dosage: 20 MILLIGRAM
     Route: 048
     Dates: start: 20060101
  6. AMLODIPINE [Concomitant]
     Indication: HYPERTENSION
     Dosage: 5 MILLIGRAM
     Route: 048
     Dates: start: 20060101
  7. BISOPROLOL FUMARATE [Concomitant]
     Indication: HYPERTENSION
     Dosage: 5 MILLIGRAM
     Route: 048
     Dates: start: 20060101
  8. AZACITIDINE [Suspect]
     Dosage: 75 MILLIGRAM/SQ. METER
     Route: 058
     Dates: start: 20110512, end: 20110518
  9. APREPITANT [Concomitant]
     Dosage: 80 MILLIGRAM
     Route: 048
     Dates: start: 20110513, end: 20110514
  10. SPIRONOLACTONE [Concomitant]
     Dosage: 25 MILLIGRAM
     Route: 048
     Dates: start: 20110512, end: 20110518
  11. ACETAMINOPHEN [Concomitant]
     Dosage: 500 MILLIGRAM
     Route: 048
     Dates: start: 20110526, end: 20110601

REACTIONS (1)
  - SPLENIC INFARCTION [None]
